FAERS Safety Report 5989517-6 (Version None)
Quarter: 2008Q4

REPORT INFORMATION
  Report Type: 
  Country: None (occurrence: None)
  Receive Date: 20081210
  Receipt Date: 20081126
  Transmission Date: 20090506
  Serious: Yes (Hospitalization)
  Sender: FDA-Public Use
  Company Number: DK-GENENTECH-272428

PATIENT
  Sex: Female

DRUGS (5)
  1. MABTHERA [Suspect]
     Indication: RHEUMATOID ARTHRITIS
     Dosage: 1000 MG, Q2W
     Route: 042
     Dates: start: 20080910, end: 20080910
  2. PREDNISOLONE [Concomitant]
     Indication: DRUG USE FOR UNKNOWN INDICATION
     Dosage: UNK
     Dates: start: 20080910, end: 20080910
  3. REMICADE [Concomitant]
     Indication: DRUG USE FOR UNKNOWN INDICATION
     Dosage: UNK
     Dates: start: 20071106, end: 20071106
  4. ENBREL [Concomitant]
     Indication: DRUG USE FOR UNKNOWN INDICATION
     Dosage: UNK
     Dates: start: 20080212, end: 20080329
  5. HUMIRA [Concomitant]
     Indication: DRUG USE FOR UNKNOWN INDICATION
     Dosage: UNK
     Dates: start: 20080630, end: 20080714

REACTIONS (1)
  - SERUM SICKNESS [None]
